FAERS Safety Report 13842604 (Version 1)
Quarter: 2017Q3

REPORT INFORMATION
  Report Type: Spontaneous
  Country: US (occurrence: US)
  Receive Date: 20170807
  Receipt Date: 20170807
  Transmission Date: 20171127
  Serious: Yes (Other)
  Sender: FDA-Public Use
  Company Number: None

PATIENT
  Age: 70 Year
  Sex: Female
  Weight: 56.25 kg

DRUGS (6)
  1. ZOLPIDERM TARTRATE 5MG [Concomitant]
     Active Substance: ZOLPIDEM TARTRATE
  2. FISH OIL [Concomitant]
     Active Substance: FISH OIL
  3. CENTRUM VITAMINS LIQUID [Concomitant]
     Active Substance: VITAMINS
  4. 81 MG ASPIRIN [Concomitant]
  5. PROLIA [Suspect]
     Active Substance: DENOSUMAB
     Indication: OSTEOPOROSIS
     Dates: start: 20170717
  6. PREMARIN CREAM [Concomitant]

REACTIONS (6)
  - Erythema [None]
  - Hypersensitivity [None]
  - Pruritus [None]
  - Peripheral swelling [None]
  - Arthropod sting [None]
  - Rash [None]

NARRATIVE: CASE EVENT DATE: 20170805
